FAERS Safety Report 4315254-X (Version None)
Quarter: 2004Q1

REPORT INFORMATION
  Report Type: 
  Country: None (occurrence: None)
  Receive Date: 20040309
  Receipt Date: 20040220
  Transmission Date: 20041129
  Serious: Yes (Life-Threatening, Hospitalization)
  Sender: FDA-Public Use
  Company Number: 7537

PATIENT
  Age: 84 Year
  Sex: Female

DRUGS (14)
  1. METHOTREXATE [Suspect]
     Indication: RHEUMATOID ARTHRITIS
     Dosage: 4 MG WEEKLY PO
     Route: 048
     Dates: start: 20030929, end: 20031222
  2. PREDNISOLONE [Concomitant]
  3. DICLOFENAC SODIUM [Concomitant]
  4. LOXOPROFEN SODIUM [Concomitant]
  5. LEVOGLUTAMIDE/SODIUM GUALENATE [Concomitant]
  6. MECOBALAMIN [Concomitant]
  7. ALFACALCIDOL [Concomitant]
  8. ACTARIT [Concomitant]
  9. ENZYMES [Concomitant]
  10. HERBAL EXTRACT [Concomitant]
  11. MENATETRENONE [Concomitant]
  12. TRIAZOLAM [Concomitant]
  13. METILDIGOXIN [Concomitant]
  14. FAMOTIDINE [Concomitant]

REACTIONS (10)
  - ANOREXIA [None]
  - DYSPNOEA [None]
  - HYPOXIA [None]
  - INTERSTITIAL LUNG DISEASE [None]
  - LUNG INFECTION [None]
  - NAUSEA [None]
  - OEDEMA PERIPHERAL [None]
  - PLEURAL EFFUSION [None]
  - PRODUCTIVE COUGH [None]
  - URINARY TRACT INFECTION [None]
